FAERS Safety Report 7545048-3 (Version None)
Quarter: 2011Q2

REPORT INFORMATION
  Report Type: 
  Country: None (occurrence: None)
  Receive Date: 20110614
  Receipt Date: 20110516
  Transmission Date: 20111010
  Serious: Yes (Other)
  Sender: FDA-Public Use
  Company Number: US-BAYER-2010-006386

PATIENT
  Age: 46 Year
  Sex: Female
  Weight: 90.703 kg

DRUGS (9)
  1. YASMIN [Suspect]
     Indication: ACNE
     Dosage: UNK
     Dates: start: 20020101, end: 20090101
  2. DROSPIRENONE AND ETHINYL ESTRADIOL [Suspect]
     Indication: ACNE
     Dosage: UNK
     Dates: start: 20020101, end: 20090101
  3. YASMIN [Suspect]
     Indication: CONTRACEPTION
  4. LEVOTHYROXINE SODIUM [Concomitant]
     Indication: HYPOTHYROIDISM
     Dosage: UNK
     Route: 048
     Dates: start: 20000101
  5. CIPROFLOXACIN HCL [Concomitant]
     Dosage: 500 MG, UNK
     Route: 048
  6. UNKNOWN [Concomitant]
     Indication: HYPERTENSION
  7. LASIX [Concomitant]
     Indication: FLUID RETENTION
     Dosage: 10 MG, UNK
     Route: 048
  8. NIFEDIAC CC [Concomitant]
     Dosage: 60 MG, UNK
     Route: 048
  9. DROSPIRENONE AND ETHINYL ESTRADIOL [Suspect]
     Indication: CONTRACEPTION

REACTIONS (3)
  - CHOLECYSTITIS CHRONIC [None]
  - CHOLELITHIASIS [None]
  - GALLBLADDER DISORDER [None]
